FAERS Safety Report 5412073-8 (Version None)
Quarter: 2007Q3

REPORT INFORMATION
  Report Type: 
  Country: None (occurrence: None)
  Receive Date: 20070713
  Receipt Date: 20070327
  Transmission Date: 20080115
  Serious: No
  Sender: FDA-Public Use
  Company Number: 2007SP001092

PATIENT
  Age: 72 Year
  Sex: Female
  Weight: 60.3284 kg

DRUGS (11)
  1. LUNESTA [Suspect]
     Indication: INSOMNIA
     Dosage: 2 MG;1X;ORAL
     Route: 048
     Dates: start: 20070323, end: 20070323
  2. EYE DROPS [Concomitant]
  3. LORAZEPAM [Concomitant]
  4. MECLIZINE [Concomitant]
  5. DESLORATADINE [Concomitant]
  6. SINGULAIR [Concomitant]
  7. OMACOR [Concomitant]
  8. PROPULSID [Concomitant]
  9. TYLENOL [Concomitant]
  10. SPIRONOLACTONE [Concomitant]
  11. DEMADEX [Concomitant]

REACTIONS (9)
  - ABDOMINAL PAIN UPPER [None]
  - ABNORMAL DREAMS [None]
  - ARTHRALGIA [None]
  - DRY EYE [None]
  - EYE PRURITUS [None]
  - HEADACHE [None]
  - NERVOUSNESS [None]
  - TREMOR [None]
  - VISION BLURRED [None]
